FAERS Safety Report 24225186 (Version 3)
Quarter: 2024Q4

REPORT INFORMATION
  Report Type: Spontaneous
  Country: CN (occurrence: CN)
  Receive Date: 20240820
  Receipt Date: 20241028
  Transmission Date: 20250115
  Serious: Yes (Hospitalization, Other)
  Sender: NOVO NORDISK
  Company Number: CN-NOVOPROD-1267819

PATIENT
  Age: 58 Year
  Sex: Male
  Weight: 48 kg

DRUGS (2)
  1. NOVOLIN R [Suspect]
     Active Substance: INSULIN HUMAN
     Indication: Diabetes mellitus
     Dosage: 16 U IN THE MORNING AND 6-7 U IN THE EVENING
     Dates: end: 202310
  2. GLUCOBAY [Concomitant]
     Active Substance: ACARBOSE
     Indication: Type 1 diabetes mellitus
     Dosage: ONE TABLET AT NOON, 50 MG
     Route: 048

REACTIONS (1)
  - Type 1 diabetes mellitus [Unknown]

NARRATIVE: CASE EVENT DATE: 20231001
